FAERS Safety Report 13258726 (Version 1)
Quarter: 2017Q1

REPORT INFORMATION
  Report Type: Spontaneous
  Country: US (occurrence: US)
  Receive Date: 20170222
  Receipt Date: 20170222
  Transmission Date: 20170428
  Serious: No
  Sender: FDA-Public Use
  Company Number: US-B.I. PHARMACEUTICALS,INC./RIDGEFIELD-2017-BI-008646

PATIENT
  Sex: Male

DRUGS (5)
  1. COMETRIQ [Concomitant]
     Active Substance: CABOZANTINIB S-MALATE
     Indication: LUNG CANCER METASTATIC
     Route: 048
     Dates: start: 20160713, end: 201609
  2. COUMADIN [Concomitant]
     Active Substance: WARFARIN SODIUM
     Indication: PRODUCT USED FOR UNKNOWN INDICATION
     Route: 065
  3. PRADAXA [Suspect]
     Active Substance: DABIGATRAN ETEXILATE MESYLATE
     Indication: PRODUCT USED FOR UNKNOWN INDICATION
     Route: 065
  4. K PHOS NEUTRAL [Concomitant]
     Active Substance: POTASSIUM PHOSPHATE, MONOBASIC\SODIUM PHOSPHATE, DIBASIC, ANHYDROUS\SODIUM PHOSPHATE, MONOBASIC, MONOHYDRATE
     Indication: PRODUCT USED FOR UNKNOWN INDICATION
     Route: 065
  5. COMETRIQ [Concomitant]
     Active Substance: CABOZANTINIB S-MALATE
     Indication: METASTASES TO LIVER
     Route: 048
     Dates: start: 2016

REACTIONS (8)
  - Abdominal discomfort [Unknown]
  - Hair colour changes [Unknown]
  - Abdominal distension [Unknown]
  - Diarrhoea [Not Recovered/Not Resolved]
  - Off label use [Unknown]
  - Rash [Unknown]
  - Joint swelling [Unknown]
  - Pain in extremity [Unknown]
